FAERS Safety Report 15952993 (Version 1)
Quarter: 2019Q1

REPORT INFORMATION
  Report Type: Spontaneous
  Country: US (occurrence: US)
  Receive Date: 20190211
  Receipt Date: 20190211
  Transmission Date: 20190417
  Serious: Yes (Hospitalization)
  Sender: FDA-Public Use
  Company Number: US-B.I. PHARMACEUTICALS,INC./RIDGEFIELD-2019-BI-005178

PATIENT
  Age: 71 Year
  Sex: Female

DRUGS (1)
  1. MIRAPEX [Suspect]
     Active Substance: PRAMIPEXOLE DIHYDROCHLORIDE
     Indication: SEIZURE
     Dosage: ADMINISTRATION CORRECT? YES ?ACTION(S) TAKEN WITH PRODUCT: DOSE NOT CHANGED
     Route: 048

REACTIONS (4)
  - Tremor [Not Recovered/Not Resolved]
  - Fall [Recovered/Resolved]
  - Off label use [Unknown]
  - Back injury [Unknown]

NARRATIVE: CASE EVENT DATE: 2018
